FAERS Safety Report 5263278-0 (Version None)
Quarter: 2007Q1

REPORT INFORMATION
  Report Type: 
  Country: None (occurrence: None)
  Receive Date: 20061219
  Receipt Date: 20061018
  Transmission Date: 20070707
  Serious: No
  Sender: FDA-Public Use
  Company Number: 2006US002312

PATIENT
  Age: 75 Year
  Sex: Male

DRUGS (9)
  1. VESICARE [Suspect]
     Indication: POLLAKIURIA
     Dosage: 5 MG, ORAL
     Route: 048
     Dates: start: 20061004, end: 20061005
  2. LISINOPRIL (LISINOPRIL DIHYDRATE) [Concomitant]
  3. DOXAZOSIN (DOXAZOSIN MESILATE) [Concomitant]
  4. DYCORPHEN (DACARBAZINE) [Concomitant]
  5. NORCO (HYDROCODONE BITARTRATE) [Concomitant]
  6. GLYBURIDE [Concomitant]
  7. GLUCOPHAGE [Concomitant]
  8. ASPIRIN [Concomitant]
  9. TYLENOL (DEXTROMETHORPHAN HYDROBROMIDE, PSEUDOEPHEDRINE HYDROCHLORIDE, [Concomitant]

REACTIONS (2)
  - NERVOUSNESS [None]
  - PSYCHOMOTOR HYPERACTIVITY [None]
